FAERS Safety Report 12425858 (Version 1)
Quarter: 2016Q2

REPORT INFORMATION
  Report Type: Spontaneous
  Country: SE (occurrence: SE)
  Receive Date: 20160601
  Receipt Date: 20160601
  Transmission Date: 20160815
  Serious: Yes (Other)
  Sender: FDA-Public Use
  Company Number: SE-PFIZER INC-2016281640

PATIENT
  Age: 67 Year
  Sex: Female
  Weight: 72 kg

DRUGS (1)
  1. CHAMPIX [Suspect]
     Active Substance: VARENICLINE TARTRATE
     Indication: SMOKING CESSATION THERAPY
     Dosage: UNK
     Dates: start: 20160119, end: 20160315

REACTIONS (25)
  - Abnormal dreams [Recovered/Resolved]
  - Cough [Recovered/Resolved]
  - Dry mouth [Recovered/Resolved]
  - Arthralgia [Recovered/Resolved]
  - Mood altered [Recovered/Resolved]
  - Acne [Recovered/Resolved]
  - Secretion discharge [Recovered/Resolved]
  - Dizziness [Recovered/Resolved]
  - Dyspepsia [Recovered/Resolved]
  - Tinnitus [Recovered/Resolved]
  - Libido disorder [Recovered/Resolved]
  - Nausea [Recovered/Resolved]
  - Somnolence [Recovered/Resolved]
  - Flatulence [Recovered/Resolved]
  - Back pain [Recovered/Resolved]
  - Hyperhidrosis [Recovered/Resolved]
  - Respiratory tract infection [Recovered/Resolved]
  - Weight increased [Recovered/Resolved]
  - Increased appetite [Recovered/Resolved]
  - Abdominal pain [Recovered/Resolved]
  - Myalgia [Recovered/Resolved]
  - Nasal congestion [Recovered/Resolved]
  - Constipation [Recovered/Resolved]
  - Erythema [Recovered/Resolved]
  - Mouth ulceration [Recovered/Resolved]

NARRATIVE: CASE EVENT DATE: 201602
